FAERS Safety Report 9656390 (Version 2)
Quarter: 2013Q4

REPORT INFORMATION
  Report Type: Report from Study
  Country: JP (occurrence: JP)
  Receive Date: 20131030
  Receipt Date: 20131030
  Transmission Date: 20140711
  Serious: Yes (Death, Hospitalization, Other)
  Sender: FDA-Public Use
  Company Number: JP-ABBVIE-13X-087-1112945-00

PATIENT
  Age: 67 Year
  Sex: Male

DRUGS (23)
  1. LIPACREON [Suspect]
     Indication: PANCREATIC INSUFFICIENCY
     Route: 048
     Dates: start: 20120921, end: 20120926
  2. LIPACREON [Suspect]
     Dates: start: 20121003, end: 20130410
  3. SHAKUYAKUKANZOTO [Suspect]
     Indication: HICCUPS
     Route: 048
     Dates: start: 20120924, end: 20120924
  4. TS-1 [Suspect]
     Indication: PRODUCT USED FOR UNKNOWN INDICATION
     Route: 048
     Dates: start: 20121106, end: 20121119
  5. TS-1 [Suspect]
     Dates: start: 20121211, end: 20121225
  6. TS-1 [Suspect]
     Dates: start: 20130108, end: 20130121
  7. TS-1 [Suspect]
     Dates: start: 20130129, end: 20130211
  8. TS-1 [Suspect]
     Dates: start: 20130219, end: 20130304
  9. MOSAPRIDE CITRATE [Concomitant]
     Indication: PRODUCT USED FOR UNKNOWN INDICATION
     Route: 048
     Dates: end: 20120927
  10. FAMOTIDINE [Concomitant]
     Indication: PANCREATIC INSUFFICIENCY
     Route: 048
  11. FAMOTIDINE [Concomitant]
     Route: 048
     Dates: start: 20120917, end: 20120927
  12. FAMOTIDINE [Concomitant]
     Dates: start: 20121106
  13. DAIKENCHUUTOU [Concomitant]
     Indication: PRODUCT USED FOR UNKNOWN INDICATION
     Route: 048
     Dates: end: 20120927
  14. BROTIZOLAM [Concomitant]
     Indication: PRODUCT USED FOR UNKNOWN INDICATION
     Route: 048
     Dates: end: 20120927
  15. MAGNESIUM OXIDE [Concomitant]
     Indication: PRODUCT USED FOR UNKNOWN INDICATION
     Route: 048
     Dates: start: 20121023
  16. HOCHUEKKITO [Concomitant]
     Indication: PRODUCT USED FOR UNKNOWN INDICATION
     Route: 048
     Dates: start: 20121106, end: 20130410
  17. ZOLPIDEM TARTRATE [Concomitant]
     Indication: PRODUCT USED FOR UNKNOWN INDICATION
     Route: 048
     Dates: start: 20121113
  18. REBAMIPIDE [Concomitant]
     Indication: GASTROINTESTINAL DISORDER
     Route: 048
     Dates: start: 20130322, end: 20130410
  19. REBAMIPIDE [Concomitant]
     Indication: PROPHYLAXIS
  20. PROCHLORPERAZINE [Concomitant]
     Indication: NAUSEA
     Route: 048
     Dates: start: 20130326
  21. PROCHLORPERAZINE [Concomitant]
     Indication: PROPHYLAXIS
  22. OXYCODONE HYDROCHLORIDE [Concomitant]
     Indication: CANCER PAIN
  23. RED BLOOD CELLS [Concomitant]
     Indication: ANAEMIA
     Route: 050
     Dates: start: 20130328, end: 20130328

REACTIONS (9)
  - Pancreatic carcinoma [Fatal]
  - Cancer pain [Not Recovered/Not Resolved]
  - Anaemia [Not Recovered/Not Resolved]
  - Hiccups [Not Recovered/Not Resolved]
  - White blood cell count decreased [Recovered/Resolved]
  - Hiccups [Recovered/Resolved]
  - Rash generalised [Recovered/Resolved]
  - Ascites [Recovered/Resolved]
  - Cholangitis [Recovered/Resolved]
